FAERS Safety Report 4544888-2 (Version None)
Quarter: 2005Q1

REPORT INFORMATION
  Report Type: 
  Country: None (occurrence: None)
  Receive Date: 20050104
  Receipt Date: 20041227
  Transmission Date: 20050727
  Serious: Yes (Life-Threatening)
  Sender: FDA-Public Use
  Company Number: 25891

PATIENT
  Age: 68 Year
  Sex: Male

DRUGS (8)
  1. TAMBOCOR [Suspect]
     Indication: ATRIAL FIBRILLATION
     Dosage: 100 MG (50 MG, 2 IN 1 DAY(S))  ORAL
     Route: 048
     Dates: start: 20041021, end: 20041028
  2. LIQUEMIN (HEPARINUM) [Suspect]
     Dosage: 25.000 IE (25.000 IE DAY)  (3 X 7.500 IE)  INTRAVENOUS
     Route: 042
     Dates: start: 20041021, end: 20041021
  3. LIQUEMIN (HEPARINUM) [Suspect]
     Dosage: 25.000 IE (25.000 IE DAY)  (3 X 7.500 IE)  INTRAVENOUS
     Route: 042
     Dates: start: 20041021, end: 20041022
  4. MARCUMAR [Concomitant]
  5. ACERCOMP (LISINOPRIL/ HYDROCHLOROZIDE) [Concomitant]
  6. ISOPTIN (VERAPAMIL) [Concomitant]
  7. SYMBICORT (BUDESONID) [Concomitant]
  8. ................. [Concomitant]

REACTIONS (4)
  - HAEMATOCHEZIA [None]
  - HYPERSENSITIVITY [None]
  - PETECHIAE [None]
  - THROMBOCYTOPENIA [None]
